FAERS Safety Report 5731420-0 (Version None)
Quarter: 2008Q2

REPORT INFORMATION
  Report Type: 
  Country: None (occurrence: None)
  Receive Date: 20080508
  Receipt Date: 20080430
  Transmission Date: 20081010
  Serious: Yes (Hospitalization)
  Sender: FDA-Public Use
  Company Number: US-JNJFOC-20080500149

PATIENT
  Sex: Female

DRUGS (4)
  1. REMICADE [Suspect]
     Indication: CROHN'S DISEASE
     Dosage: REPORTED LAST DOSE ABOUT 6 WEEKS AGO
     Route: 042
  2. IMURAN [Concomitant]
     Indication: CROHN'S DISEASE
  3. ASACOL [Concomitant]
     Indication: CROHN'S DISEASE
  4. PREDNISONE TAB [Concomitant]
     Indication: CROHN'S DISEASE

REACTIONS (1)
  - CARDIOMYOPATHY [None]
